FAERS Safety Report 4704711-X (Version None)
Quarter: 2005Q2

REPORT INFORMATION
  Report Type: 
  Country: None (occurrence: None)
  Receive Date: 20050629
  Receipt Date: 20050614
  Transmission Date: 20051028
  Serious: No
  Sender: FDA-Public Use
  Company Number: B0384406A

PATIENT
  Sex: 0
  Weight: 2.9937 kg

DRUGS (10)
  1. ZANTAC [Suspect]
     Dosage: 150 MG/TWICE PER DAY/ TRANSPLACEN
  2. REMIFENTANIL HCL (REMIFENTANIL HCL) [Suspect]
     Dosage: SEE DOSGE TEXT/TRANSPLAC
     Route: 064
  3. METOCLOPRAMIDE [Suspect]
     Dosage: 10 MG/SINGLE DOSE/TRANSPLACENTA
     Route: 064
  4. SUCCINYLCHOLINE CHLORIDE [Suspect]
     Dosage: 1.5 MG/KG/TRANSPLACENTARY
     Route: 064
  5. HARTMANN'S SOLUTION (HARTMANN'S SOLUTION) [Suspect]
     Dosage: TRANSPLACENTARY
     Route: 064
  6. SODIUM CITRATE [Suspect]
     Dosage: 30 ML / TRANSPLACENTARY
     Route: 064
  7. ETOMIDATE (ETOMIDATE) [Suspect]
     Dosage: TRANSPLACENTARY
     Route: 064
  8. ISOFLURANE+NITR.OX+OXYGEN(ISOFLURANE+NITR.OX+OXYGEN) [Suspect]
     Dosage: TRANSPLACENTARY
     Route: 064
  9. VENCURONIUM BROMIDE (VECURONIUM BROMIDE) [Suspect]
     Dosage: .1 ,G/KG/TRANSPLACENTARY
     Route: 064
  10. METARAMINOL (METARAMINOL) [Suspect]
     Dosage: TRANSPLACENTARY
     Route: 064

REACTIONS (4)
  - APGAR SCORE LOW [None]
  - DRUG EXPOSURE DURING PREGNANCY [None]
  - NEONATAL DISORDER [None]
  - RESPIRATORY DISORDER [None]
